FAERS Safety Report 11739351 (Version 1)
Quarter: 2015Q4

REPORT INFORMATION
  Report Type: Spontaneous
  Country: US (occurrence: US)
  Receive Date: 20151113
  Receipt Date: 20151113
  Transmission Date: 20160304
  Serious: No
  Sender: FDA-Public Use
  Company Number: US-ROCHE-1259986

PATIENT
  Sex: Female

DRUGS (4)
  1. CRESTOR [Concomitant]
     Active Substance: ROSUVASTATIN CALCIUM
  2. AVATROMBOPAG MALEATE [Concomitant]
     Active Substance: AVATROMBOPAG
     Indication: HYPERTENSION
  3. KADCYLA [Suspect]
     Active Substance: ADO-TRASTUZUMAB EMTANSINE
     Indication: METASTASES TO ADRENALS
  4. KADCYLA [Suspect]
     Active Substance: ADO-TRASTUZUMAB EMTANSINE
     Indication: BREAST CANCER
     Route: 042
     Dates: start: 201304

REACTIONS (1)
  - Tenderness [Not Recovered/Not Resolved]
